FAERS Safety Report 9039740 (Version 1)
Quarter: 2013Q1

REPORT INFORMATION
  Report Type: Report from Study
  Country: US (occurrence: US)
  Receive Date: 20130130
  Receipt Date: 20130130
  Transmission Date: 20140127
  Serious: No
  Sender: FDA-Public Use
  Company Number: US-ABBOTT-12P-163-0941766-00

PATIENT
  Sex: Female
  Weight: 77.18 kg

DRUGS (5)
  1. HUMIRA 40 MG/0.8 ML PEN [Suspect]
     Indication: PSORIASIS
  2. HUMIRA 40 MG/0.8 ML PEN [Suspect]
     Indication: PSORIASIS
  3. QUINIPRIL [Concomitant]
     Indication: HYPERTENSION
  4. HCTZ [Concomitant]
     Indication: HYPERTENSION
  5. ATARAX [Concomitant]
     Indication: HYPERSENSITIVITY

REACTIONS (1)
  - Papilloma [Not Recovered/Not Resolved]
